FAERS Safety Report 10656310 (Version 1)
Quarter: 2014Q4

REPORT INFORMATION
  Report Type: Spontaneous
  Country: DK (occurrence: DK)
  Receive Date: 20141216
  Receipt Date: 20141216
  Transmission Date: 20150529
  Serious: Yes (Other)
  Sender: FDA-Public Use
  Company Number: DK-WATSON-2014-26572

PATIENT
  Sex: Male

DRUGS (1)
  1. STESOLID [Suspect]
     Active Substance: DIAZEPAM
     Indication: PRODUCT USED FOR UNKNOWN INDICATION
     Dosage: UNK
     Route: 065
     Dates: start: 1979, end: 1982

REACTIONS (8)
  - Stress [Recovered/Resolved]
  - Anxiety [Recovered/Resolved]
  - Drug abuse [Recovered/Resolved]
  - Physical disability [Not Recovered/Not Resolved]
  - Depression [Recovered/Resolved]
  - Mental disability [Not Recovered/Not Resolved]
  - Memory impairment [Not Recovered/Not Resolved]
  - Disturbance in attention [Not Recovered/Not Resolved]
